FAERS Safety Report 13014679 (Version 2)
Quarter: 2019Q1

REPORT INFORMATION
  Report Type: Spontaneous
  Country: US (occurrence: US)
  Receive Date: 20161209
  Receipt Date: 20190222
  Transmission Date: 20190417
  Serious: Yes (Other)
  Sender: FDA-Public Use
  Company Number: US-BAUSCH-BL-2016-030422

PATIENT
  Sex: Female

DRUGS (2)
  1. CICLOSPORIN [Suspect]
     Active Substance: CYCLOSPORINE
     Indication: IMMUNOSUPPRESSION
     Route: 065
  2. NIFEDIPINE. [Suspect]
     Active Substance: NIFEDIPINE
     Indication: HYPERTENSION
     Dosage: EXTENDED RELEASE TABLET, DAILY,  SINCE 2  DECADES
     Route: 065

REACTIONS (4)
  - Hypertension [Recovered/Resolved]
  - Drug effect decreased [Not Recovered/Not Resolved]
  - Drug level increased [Unknown]
  - Drug ineffective [Not Recovered/Not Resolved]
